FAERS Safety Report 5933085-1 (Version None)
Quarter: 2008Q4

REPORT INFORMATION
  Report Type: 
  Country: None (occurrence: None)
  Receive Date: 20081028
  Receipt Date: 20081017
  Transmission Date: 20090506
  Serious: Yes (Hospitalization)
  Sender: FDA-Public Use
  Company Number: FR-JNJFOC-20081004845

PATIENT
  Age: 42 Year
  Sex: Female

DRUGS (5)
  1. REMICADE [Suspect]
     Dosage: 6 INFUSIONS
     Route: 042
  2. REMICADE [Suspect]
     Route: 042
  3. REMICADE [Suspect]
     Indication: ANKYLOSING SPONDYLITIS
     Route: 042
  4. METHOTREXATE [Concomitant]
     Indication: ANKYLOSING SPONDYLITIS
  5. SPECIAFOLDINE [Concomitant]
     Indication: ANKYLOSING SPONDYLITIS

REACTIONS (5)
  - INFLAMMATION [None]
  - INFUSION RELATED REACTION [None]
  - LARYNX IRRITATION [None]
  - SCIATICA [None]
  - VOMITING [None]
